FAERS Safety Report 8820534 (Version 1)
Quarter: 2012Q4

REPORT INFORMATION
  Report Type: 
  Country: DK (occurrence: FR)
  Receive Date: 20121002
  Receipt Date: 20121002
  Transmission Date: 20130627
  Serious: Yes (Life-Threatening)
  Sender: FDA-Public Use
  Company Number: FR-FRI-1000039069

PATIENT
  Age: 89 Year
  Sex: Female

DRUGS (11)
  1. ESCITALOPRAM [Suspect]
     Dosage: 10 mg
     Route: 048
  2. HYTACAND [Interacting]
     Dosage: 8 mg/12.5 mg
     Route: 048
     Dates: end: 20120616
  3. RISPERDAL [Interacting]
     Dosage: 1 mg
     Route: 048
     Dates: end: 20120616
  4. COLCHICINE [Concomitant]
  5. CODOLIPRANE [Concomitant]
  6. TIAPRIDAL [Concomitant]
  7. TRANSIPEG [Concomitant]
  8. LEVOPHTA [Concomitant]
  9. XANAX [Concomitant]
  10. HEMIGOXINE [Concomitant]
  11. INIPOMP [Concomitant]

REACTIONS (3)
  - Inappropriate antidiuretic hormone secretion [Recovered/Resolved]
  - Hyponatraemia [Recovered/Resolved]
  - Drug interaction [Recovered/Resolved]
